FAERS Safety Report 9050320 (Version 3)
Quarter: 2013Q3

REPORT INFORMATION
  Report Type: Report from Study
  Country: US (occurrence: US)
  Receive Date: 20130205
  Receipt Date: 20130801
  Transmission Date: 20140515
  Serious: Yes (Death, Other)
  Sender: FDA-Public Use
  Company Number: PHEH2013US002229

PATIENT
  Age: 34 Year
  Sex: Female

DRUGS (2)
  1. GILENYA [Suspect]
     Indication: PRIMARY PROGRESSIVE MULTIPLE SCLEROSIS
     Dosage: 0.5 MG, QD
     Route: 048
     Dates: start: 20120214, end: 201302
  2. GILENYA [Suspect]
     Indication: OFF LABEL USE

REACTIONS (3)
  - Primary progressive multiple sclerosis [Fatal]
  - Malaise [Unknown]
  - Drug ineffective [Unknown]
